FAERS Safety Report 8302507-3 (Version None)
Quarter: 2012Q2

REPORT INFORMATION
  Report Type: 
  Country: None (occurrence: None)
  Receive Date: 20120420
  Receipt Date: 20120416
  Transmission Date: 20120825
  Serious: Yes (Other)
  Sender: FDA-Public Use
  Company Number: IT-ABBOTT-12P-083-0920935-00

PATIENT
  Sex: Male

DRUGS (5)
  1. HALOPERIDOL [Concomitant]
     Indication: PRODUCT USED FOR UNKNOWN INDICATION
  2. ALFUZOSIN HCL [Concomitant]
     Indication: PRODUCT USED FOR UNKNOWN INDICATION
  3. DEPAKENE [Suspect]
     Indication: MOOD ALTERED
     Route: 048
     Dates: start: 20111001, end: 20120320
  4. ZYPREXA [Concomitant]
     Indication: PRODUCT USED FOR UNKNOWN INDICATION
  5. HALDOL [Concomitant]
     Indication: PRODUCT USED FOR UNKNOWN INDICATION

REACTIONS (3)
  - ATTENTION DEFICIT/HYPERACTIVITY DISORDER [None]
  - DYSPHORIA [None]
  - HYPERAMMONAEMIA [None]
